FAERS Safety Report 15434908 (Version 1)
Quarter: 2018Q3

REPORT INFORMATION
  Report Type: Spontaneous
  Country: US (occurrence: US)
  Receive Date: 20180927
  Receipt Date: 20180927
  Transmission Date: 20181010
  Serious: Yes (Other)
  Sender: FDA-Public Use
  Company Number: US-JNJFOC-20180924741

PATIENT
  Sex: Male

DRUGS (1)
  1. REMICADE [Suspect]
     Active Substance: INFLIXIMAB
     Indication: PRODUCT USED FOR UNKNOWN INDICATION
     Dosage: 100 MG
     Route: 042

REACTIONS (6)
  - Dizziness [Unknown]
  - Drug hypersensitivity [Unknown]
  - Diverticulitis [Unknown]
  - Chills [Unknown]
  - Influenza like illness [Unknown]
  - Dysuria [Unknown]
